FAERS Safety Report 8868771 (Version 1)
Quarter: 2012Q4

REPORT INFORMATION
  Report Type: 
  Country: US (occurrence: US)
  Receive Date: 20121026
  Receipt Date: 20121026
  Transmission Date: 20130627
  Serious: No
  Sender: FDA-Public Use
  Company Number: US-AMGEN-USASP2012047676

PATIENT
  Age: 54 Year
  Sex: Male

DRUGS (8)
  1. ENBREL [Suspect]
     Indication: PRODUCT USED FOR UNKNOWN INDICATION
     Dosage: 50 mg, qwk
     Route: 058
  2. PLAQUENIL                          /00072602/ [Concomitant]
     Dosage: 200 mg, UNK
  3. METHOTREXATE [Concomitant]
     Dosage: 2.5 mg, UNK
  4. PREDNISONE [Concomitant]
     Dosage: 1 mg, UNK
  5. VICODIN [Concomitant]
     Dosage: 5 mg, UNK
  6. LEFLUNOMIDE [Concomitant]
     Dosage: 10 mg, UNK
  7. FOLIC ACID [Concomitant]
     Dosage: 1 mg, UNK
  8. MULTIVITAMIN                       /00097801/ [Concomitant]
     Dosage: UNK

REACTIONS (2)
  - Arthralgia [Unknown]
  - Joint swelling [Unknown]
